FAERS Safety Report 4300488-0 (Version None)
Quarter: 2004Q1

REPORT INFORMATION
  Report Type: 
  Country: None (occurrence: None)
  Receive Date: 20040217
  Receipt Date: 20040204
  Transmission Date: 20041129
  Serious: Yes (Life-Threatening, Hospitalization, Disabling)
  Sender: FDA-Public Use
  Company Number: UK033628

PATIENT
  Age: 70 Year
  Sex: Male

DRUGS (5)
  1. NEUPOGEN [Suspect]
     Indication: CHEMOTHERAPY
     Dosage: 300 MCG
     Dates: start: 20010507
  2. DOXORUBICIN HCL [Suspect]
     Dosage: 48 MG, PER CHEMO REGIMEN, IV
     Route: 042
     Dates: start: 20001024, end: 20010518
  3. BLEOMYCIN SULFATE [Suspect]
     Dosage: 19 MG, PER CHEMO REGIMEN, IV
     Route: 042
     Dates: start: 20001024, end: 20010518
  4. DACARBAZINE [Suspect]
     Dosage: 725 MG, PER CHEMO REGIMEN, IV
     Route: 042
     Dates: start: 20001024, end: 20010518
  5. VINBLASTINE SULFATE [Suspect]
     Dosage: 11 MG, PER CHEMO REGIMEN, IV
     Route: 042
     Dates: start: 20001024, end: 20010518

REACTIONS (8)
  - CREPITATIONS [None]
  - DRUG INTERACTION [None]
  - DYSPNOEA [None]
  - HYPOXIA [None]
  - PULMONARY FIBROSIS [None]
  - PULMONARY TOXICITY [None]
  - RESTRICTIVE PULMONARY DISEASE [None]
  - TOTAL LUNG CAPACITY DECREASED [None]
